FAERS Safety Report 4371200-4 (Version None)
Quarter: 2004Q2

REPORT INFORMATION
  Report Type: 
  Country: None (occurrence: None)
  Receive Date: 20040604
  Receipt Date: 20040525
  Transmission Date: 20050107
  Serious: Yes (Hospitalization)
  Sender: FDA-Public Use
  Company Number: JP-GLAXOSMITHKLINE-B0333809A

PATIENT
  Age: 7 Year
  Sex: Female

DRUGS (7)
  1. FLOLAN [Suspect]
     Indication: PULMONARY HYPERTENSION
     Route: 042
     Dates: start: 20021011
  2. WARFARIN POTASSIUM [Concomitant]
     Route: 048
  3. FUROSEMIDE [Concomitant]
     Route: 048
  4. SPIRONOLACTONE [Concomitant]
     Route: 048
  5. PERSANTIN [Concomitant]
     Route: 048
  6. RENIVACE [Concomitant]
     Route: 048
  7. FERROMIA (JAPAN) [Concomitant]
     Route: 048

REACTIONS (2)
  - CELLULITIS [None]
  - PYREXIA [None]
